FAERS Safety Report 9463108 (Version 2)
Quarter: 2013Q4

REPORT INFORMATION
  Report Type: Spontaneous
  Country: AU (occurrence: AU)
  Receive Date: 20130816
  Receipt Date: 20131002
  Transmission Date: 20140711
  Serious: Yes (Death, Hospitalization)
  Sender: FDA-Public Use
  Company Number: AU-CELGENEUS-008-C4047-13081801

PATIENT
  Age: 79 Year
  Sex: Male

DRUGS (5)
  1. CC-4047 [Suspect]
     Indication: PLASMA CELL MYELOMA
     Dosage: 4 MILLIGRAM
     Route: 048
     Dates: start: 20130427, end: 20130802
  2. TARGIN [Concomitant]
     Indication: ANALGESIC THERAPY
     Route: 065
     Dates: start: 201301, end: 20130802
  3. TARGIN [Concomitant]
     Route: 065
     Dates: start: 201301, end: 20130802
  4. ASPIRINE [Concomitant]
     Indication: THROMBOSIS PROPHYLAXIS
     Route: 065
     Dates: start: 2004, end: 20130802
  5. DEXAMETHASONE [Concomitant]
     Indication: PLASMA CELL MYELOMA
     Route: 065
     Dates: end: 20130802

REACTIONS (2)
  - Pneumonia aspiration [Fatal]
  - Embolic stroke [Not Recovered/Not Resolved]
